FAERS Safety Report 10589505 (Version 3)
Quarter: 2014Q4

REPORT INFORMATION
  Report Type: Spontaneous
  Country: IL (occurrence: None)
  Receive Date: 20141114
  Receipt Date: 20141205
  Transmission Date: 20150529
  Serious: Yes (Congenital Anomaly, Other)
  Sender: FDA-Public Use
  Company Number: IL2014GSK020672

PATIENT
  Age: 0 Day
  Sex: Male
  Weight: 2.9 kg

DRUGS (2)
  1. ABACAVIR SULFATE + LAMIVUDINE [Suspect]
     Active Substance: ABACAVIR SULFATE\LAMIVUDINE
     Indication: HIV INFECTION
     Route: 064
  2. INTELENCE [Suspect]
     Active Substance: ETRAVIRINE
     Indication: HIV INFECTION
     Route: 064

REACTIONS (4)
  - Atrial septal defect [None]
  - Premature baby [None]
  - Ventricular septal defect [None]
  - Maternal drugs affecting foetus [None]

NARRATIVE: CASE EVENT DATE: 20141024
